FAERS Safety Report 16965079 (Version 1)
Quarter: 2019Q4

REPORT INFORMATION
  Report Type: Spontaneous
  Country: US (occurrence: US)
  Receive Date: 20191028
  Receipt Date: 20191028
  Transmission Date: 20200122
  Serious: Yes (Other)
  Sender: FDA-Public Use
  Company Number: US-SCIEGEN PHARMACEUTICALS INC-2019SCILIT00293

PATIENT
  Age: 54 Year
  Sex: Female

DRUGS (3)
  1. ANTIHYPERTENSIVES [Interacting]
     Active Substance: UNSPECIFIED INGREDIENT
  2. FLUOXETINE [Suspect]
     Active Substance: FLUOXETINE HYDROCHLORIDE
  3. ACETAMINOPHEN. [Interacting]
     Active Substance: ACETAMINOPHEN

REACTIONS (2)
  - Food interaction [Recovered/Resolved]
  - Reversible cerebral vasoconstriction syndrome [Recovered/Resolved]
